FAERS Safety Report 17760852 (Version 1)
Quarter: 2020Q2

REPORT INFORMATION
  Report Type: Report from Study
  Country: US (occurrence: US)
  Receive Date: 20200508
  Receipt Date: 20200508
  Transmission Date: 20200714
  Serious: Yes (Hospitalization)
  Sender: FDA-Public Use
  Company Number: US-GILEAD-2020-0465024

PATIENT
  Sex: Female

DRUGS (1)
  1. AZTREONAM LYSINE [Suspect]
     Active Substance: AZTREONAM LYSINE
     Indication: CYSTIC FIBROSIS
     Dosage: 1 AMPULE THREE TIMES DAILY FOR 28 DAYS, REST FOR 28 DAYS
     Route: 055

REACTIONS (2)
  - Pulmonary pain [Recovered/Resolved]
  - Lung disorder [Recovered/Resolved]
